FAERS Safety Report 9178859 (Version 1)
Quarter: 2013Q1

REPORT INFORMATION
  Report Type: Spontaneous
  Country: JP (occurrence: JP)
  Receive Date: 20130321
  Receipt Date: 20130321
  Transmission Date: 20140127
  Serious: Yes (Other)
  Sender: FDA-Public Use
  Company Number: JP-ROCHE-1203751

PATIENT
  Age: 79 Year
  Sex: Male

DRUGS (4)
  1. XELODA [Suspect]
     Indication: GASTRIC CANCER
     Route: 048
  2. XELODA [Suspect]
     Indication: GASTRIC CANCER
     Route: 048
  3. CISPLATIN [Concomitant]
     Indication: GASTRIC CANCER
     Dosage: DOSAGE IS UNCERTAIN.
     Route: 041
  4. HERCEPTIN [Concomitant]
     Indication: GASTRIC CANCER
     Dosage: DOSAGE IS UNCERTAIN.
     Route: 041

REACTIONS (3)
  - Creatinine renal clearance decreased [Unknown]
  - Stomatitis [Unknown]
  - Palmar-plantar erythrodysaesthesia syndrome [Unknown]
